FAERS Safety Report 6147781-7 (Version None)
Quarter: 2009Q2

REPORT INFORMATION
  Report Type: 
  Country: None (occurrence: None)
  Receive Date: 20090402
  Receipt Date: 20090210
  Transmission Date: 20091009
  Serious: No
  Sender: FDA-Public Use
  Company Number: 1000003895

PATIENT
  Age: 58 Year
  Sex: Female

DRUGS (5)
  1. BYSTOLIC [Suspect]
     Indication: HYPERTENSION
     Dosage: 5 MG (5 MG, 1 IN 1 D), ORAL
     Route: 048
     Dates: start: 20080801, end: 20090101
  2. LOVAZA [Concomitant]
  3. SINGULAIR [Concomitant]
  4. SELENIUM [Concomitant]
  5. ZINC [Concomitant]

REACTIONS (1)
  - ALOPECIA [None]
